FAERS Safety Report 20393913 (Version 2)
Quarter: 2022Q1

REPORT INFORMATION
  Report Type: Spontaneous
  Country: IT (occurrence: IT)
  Receive Date: 20220129
  Receipt Date: 20220329
  Transmission Date: 20220423
  Serious: Yes (Death, Other)
  Sender: FDA-Public Use
  Company Number: IT-AMGEN-ITASP2022013663

PATIENT

DRUGS (1)
  1. BLINATUMOMAB [Suspect]
     Active Substance: BLINATUMOMAB
     Indication: B precursor type acute leukaemia
     Dosage: UNK UNK, QD
     Route: 065

REACTIONS (24)
  - Death [Fatal]
  - Sepsis [Fatal]
  - Autoimmune arthritis [Unknown]
  - Ascites [Unknown]
  - Hepatotoxicity [Unknown]
  - Polyneuropathy [Unknown]
  - Dysmetria [Unknown]
  - Hypogammaglobulinaemia [Unknown]
  - Neurotoxicity [Unknown]
  - Altered state of consciousness [Unknown]
  - Seizure [Unknown]
  - Thrombocytopenia [Unknown]
  - Neutropenia [Unknown]
  - Hepatic candidiasis [Unknown]
  - Pneumocystis jirovecii pneumonia [Unknown]
  - B precursor type acute leukaemia [Unknown]
  - Therapy non-responder [Unknown]
  - Dysarthria [Unknown]
  - Rash [Unknown]
  - Anaemia [Unknown]
  - Pyrexia [Unknown]
  - Aphasia [Unknown]
  - Tremor [Unknown]
  - Minimal residual disease [Unknown]
